FAERS Safety Report 20616093 (Version 1)
Quarter: 2022Q1

REPORT INFORMATION
  Report Type: Spontaneous
  Country: NL (occurrence: NL)
  Receive Date: 20220321
  Receipt Date: 20220321
  Transmission Date: 20220424
  Serious: Yes (Other)
  Sender: FDA-Public Use
  Company Number: None

PATIENT
  Sex: Female
  Weight: 70 kg

DRUGS (3)
  1. SEREVENT DISKUS [Suspect]
     Active Substance: SALMETEROL XINAFOATE
     Indication: Dyspnoea
     Dosage: 1 DF, BID (1 DF,(2XDD 50 TO 100 UG))
     Route: 065
     Dates: start: 20220209, end: 20220217
  2. FLIXOTIDE AEROSOL [Concomitant]
     Indication: Product used for unknown indication
     Dosage: 250 UG,  (AEROSOL, 250 ?G/DOSE (MICROGRAMS PER DOSE))
     Route: 065
  3. ALBUTEROL [Concomitant]
     Active Substance: ALBUTEROL
     Indication: Product used for unknown indication
     Dosage: 100 UG (AEROSOL, 100 ?G/DOSE (MICROGRAMS PER DOSE))
     Route: 065

REACTIONS (4)
  - Hallucination, visual [Recovering/Resolving]
  - Disturbance in attention [Recovering/Resolving]
  - Abnormal dreams [Recovering/Resolving]
  - Restlessness [Recovering/Resolving]
